FAERS Safety Report 7053361-1 (Version None)
Quarter: 2010Q4

REPORT INFORMATION
  Report Type: 
  Country: None (occurrence: None)
  Receive Date: 20101020
  Receipt Date: 20101008
  Transmission Date: 20110411
  Serious: Yes (Hospitalization, Other)
  Sender: FDA-Public Use
  Company Number: CH-PAR PHARMACEUTICAL, INC-2010SCPR002105

PATIENT
  Age: 50 Year
  Sex: Male

DRUGS (9)
  1. RISPERIDONE [Suspect]
     Indication: SCHIZOPHRENIA
     Dosage: METERED DOSE 6 MG/D
     Route: 065
  2. RISPERIDONE [Suspect]
     Dosage: 6 MG/ DAY (METERED DOSE FROM DAY 5-21 OF HOSPITALISATION)
  3. LITHIUM [Suspect]
     Indication: SCHIZOAFFECTIVE DISORDER
     Dosage: 900 MG/D
     Route: 065
  4. LITHIUM [Suspect]
     Dosage: METERED DOSE 1575 MG/DAY
  5. OLANZAPINE [Suspect]
     Indication: SCHIZOPHRENIA
     Dosage: UNK
     Route: 065
  6. ZUCLOPENTHIXOL [Suspect]
     Indication: SCHIZOPHRENIA
     Dosage: UNK
     Route: 065
  7. QUETIAPINE [Suspect]
     Indication: PSYCHOTIC DISORDER
     Dosage: 600 MG/D
     Route: 065
  8. QUETIAPINE [Suspect]
     Dosage: UNK, (SLOWLY TAPERED FROM DAY 6 TO 13 OF HOSPITALISATION)
  9. LEVOMEPROMAZINE [Suspect]
     Indication: SCHIZOPHRENIA
     Dosage: UNK
     Route: 065

REACTIONS (3)
  - CATATONIA [None]
  - NEUROLEPTIC MALIGNANT SYNDROME [None]
  - PNEUMONIA [None]
